FAERS Safety Report 25321496 (Version 2)
Quarter: 2025Q2

REPORT INFORMATION
  Report Type: Report from Study
  Country: US (occurrence: US)
  Receive Date: 20250516
  Receipt Date: 20250612
  Transmission Date: 20250716
  Serious: Yes (Hospitalization, Other)
  Sender: ABBVIE
  Company Number: US-ABBVIE-6078537

PATIENT
  Age: 52 Year
  Sex: Female
  Weight: 47.627 kg

DRUGS (2)
  1. SKYRIZI [Suspect]
     Active Substance: RISANKIZUMAB-RZAA
     Indication: Psoriasis
     Dosage: FORM STRENGTH: 150 MILLIGRAM
     Route: 058
     Dates: start: 201911, end: 20250415
  2. SKYRIZI [Suspect]
     Active Substance: RISANKIZUMAB-RZAA
     Dosage: FORM STRENGTH: 150 MILLIGRAM
     Route: 058
     Dates: start: 20250428

REACTIONS (12)
  - Exostosis [Recovered/Resolved]
  - Bone disorder [Recovered/Resolved]
  - Rash macular [Recovered/Resolved with Sequelae]
  - Dysstasia [Recovered/Resolved]
  - Suture related complication [Recovering/Resolving]
  - Joint injury [Recovered/Resolved]
  - Osteoarthritis [Not Recovered/Not Resolved]
  - Joint lock [Recovered/Resolved]
  - Arthralgia [Recovered/Resolved]
  - Gait inability [Recovered/Resolved]
  - Appendicitis [Recovered/Resolved]
  - Stress [Not Recovered/Not Resolved]

NARRATIVE: CASE EVENT DATE: 20230101
